FAERS Safety Report 12309829 (Version 3)
Quarter: 2016Q3

REPORT INFORMATION
  Report Type: Spontaneous
  Country: US (occurrence: US)
  Receive Date: 20160427
  Receipt Date: 20160722
  Transmission Date: 20161109
  Serious: Yes (Disabling, Other)
  Sender: FDA-Public Use
  Company Number: US-SUN PHARMACEUTICAL INDUSTRIES LTD-2016US-115297

PATIENT
  Age: 69 Year
  Sex: Male

DRUGS (1)
  1. ZOLEDRONIC ACID [Suspect]
     Active Substance: ZOLEDRONIC ACID
     Indication: ADJUVANT THERAPY
     Dosage: UNK
     Route: 065

REACTIONS (7)
  - Blindness unilateral [Not Recovered/Not Resolved]
  - Osteonecrosis of jaw [Unknown]
  - Exophthalmos [Unknown]
  - Eyelid ptosis [Unknown]
  - Osteomyelitis [Unknown]
  - Blindness [Not Recovered/Not Resolved]
  - Eye movement disorder [Not Recovered/Not Resolved]
